FAERS Safety Report 11074270 (Version 1)
Quarter: 2015Q2

REPORT INFORMATION
  Report Type: Spontaneous
  Country: US (occurrence: None)
  Receive Date: 20150428
  Receipt Date: 20150428
  Transmission Date: 20150821
  Serious: Yes (Other)
  Sender: FDA-Public Use
  Company Number: None

PATIENT
  Age: 67 Year
  Sex: Female
  Weight: 58.97 kg

DRUGS (19)
  1. CYMBALTA [Suspect]
     Active Substance: DULOXETINE HYDROCHLORIDE
     Indication: PAIN
     Dosage: BY MOUTH
     Dates: start: 20121009, end: 201412
  2. CLONAZEPAM. [Suspect]
     Active Substance: CLONAZEPAM
  3. BUMETANIDE. [Concomitant]
     Active Substance: BUMETANIDE
  4. IRON [Concomitant]
     Active Substance: IRON
  5. MUCINEX [Concomitant]
     Active Substance: GUAIFENESIN
  6. CYMBALTA [Suspect]
     Active Substance: DULOXETINE HYDROCHLORIDE
     Indication: FIBROMYALGIA
     Dosage: BY MOUTH
     Dates: start: 20121009, end: 201412
  7. SINGULAIR [Concomitant]
     Active Substance: MONTELUKAST SODIUM
  8. DULERA [Concomitant]
     Active Substance: FORMOTEROL FUMARATE DIHYDRATE\MOMETASONE FUROATE
  9. CALCIUM + D [Concomitant]
     Active Substance: CALCIUM\VITAMIN D
  10. MAGNESIUM [Concomitant]
     Active Substance: MAGNESIUM
  11. NEXIUM [Concomitant]
     Active Substance: ESOMEPRAZOLE MAGNESIUM
  12. CYMBALTA [Suspect]
     Active Substance: DULOXETINE HYDROCHLORIDE
     Indication: DEPRESSION
     Dosage: BY MOUTH
     Dates: start: 20121009, end: 201412
  13. LOSARTAN [Concomitant]
     Active Substance: LOSARTAN
  14. POTASSIUM CHLORIDE. [Concomitant]
     Active Substance: POTASSIUM CHLORIDE
  15. ASPIRIN. [Concomitant]
     Active Substance: ASPIRIN
  16. VITAMIN B COMPLEX [Concomitant]
     Active Substance: CYANOCOBALAMIN\DEXPANTHENOL\NIACINAMIDE\PYRIDOXINE HYDROCHLORIDE\RIBOFLAVIN 5^-PHOSPHATE SODIUM\THIAMINE HYDROCHLORIDE\VITAMIN B COMPLEX
  17. OXYGEN. [Concomitant]
     Active Substance: OXYGEN
  18. NEURONTIN [Concomitant]
     Active Substance: GABAPENTIN
  19. ACIDOPHIUS [Concomitant]

REACTIONS (8)
  - Irritability [None]
  - Anger [None]
  - Headache [None]
  - Inadequate analgesia [None]
  - Lethargy [None]
  - Drug withdrawal syndrome [None]
  - Tinnitus [None]
  - Agitation [None]

NARRATIVE: CASE EVENT DATE: 201412
